FAERS Safety Report 23427280 (Version 1)
Quarter: 2024Q1

REPORT INFORMATION
  Report Type: Spontaneous
  Country: RO (occurrence: RO)
  Receive Date: 20240122
  Receipt Date: 20240122
  Transmission Date: 20240410
  Serious: Yes (Life-Threatening, Hospitalization, Other)
  Sender: FDA-Public Use
  Company Number: RO-MLMSERVICE-20240104-4758249-1

PATIENT
  Age: 1 Decade
  Sex: Female

DRUGS (8)
  1. ETOPOSIDE [Suspect]
     Active Substance: ETOPOSIDE
     Indication: Ewing^s sarcoma
     Dosage: DOSE REDUCED BY 20%
  2. DOXORUBICIN [Suspect]
     Active Substance: DOXORUBICIN
     Indication: Ewing^s sarcoma
     Dosage: /D, DAY1, 2, 3, AT 21 DAYS INTERVALS
  3. ACTINOMYCIN D [Suspect]
     Active Substance: DACTINOMYCIN
     Indication: Ewing^s sarcoma
     Dosage: /D, DAY1, 2, AT 21 DAYS INTERVALS
  4. VINCRISTINE [Suspect]
     Active Substance: VINCRISTINE
     Indication: Ewing^s sarcoma
     Dosage: /DAY, DAY 1, AT 21 DAYS INTERVALS
  5. IFOSFAMIDE [Suspect]
     Active Substance: IFOSFAMIDE
     Indication: Ewing^s sarcoma
     Dosage: 9 G/SQ. M/DAY1, 2, 3, AT 21 DAYS INTERVALS
  6. VINCRISTINE [Suspect]
     Active Substance: VINCRISTINE
     Indication: Ewing^s sarcoma
     Dosage: /D, DAY 1, AT 21 DAYS INTERVALS
  7. IFOSFAMIDE [Suspect]
     Active Substance: IFOSFAMIDE
     Indication: Ewing^s sarcoma
     Dosage: 6 GM/SQ. M /D, DAY1, 2, AT 21 DAYS INTERVALS
  8. ETOPOSIDE [Suspect]
     Active Substance: ETOPOSIDE
     Indication: Ewing^s sarcoma
     Dosage: DAY1, 2, 3, AT 21 DAYS INTERVALS

REACTIONS (4)
  - Pseudomonas infection [Recovering/Resolving]
  - Acute respiratory failure [Recovering/Resolving]
  - Neutropenia [Unknown]
  - Staphylococcal infection [Recovering/Resolving]
